FAERS Safety Report 7179020-2 (Version None)
Quarter: 2010Q4

REPORT INFORMATION
  Report Type: 
  Country: None (occurrence: None)
  Receive Date: 20101221
  Receipt Date: 20101217
  Transmission Date: 20110411
  Serious: Yes (Death)
  Sender: FDA-Public Use
  Company Number: JP-JNJFOC-20101206661

PATIENT
  Age: 4 Decade
  Sex: Female
  Weight: 100 kg

DRUGS (3)
  1. RISPERDAL CONSTA [Suspect]
     Indication: ILL-DEFINED DISORDER
     Route: 030
  2. RISPERDAL [Suspect]
     Indication: ILL-DEFINED DISORDER
     Route: 048
  3. SILECE [Suspect]
     Indication: ILL-DEFINED DISORDER
     Route: 048

REACTIONS (2)
  - CORONARY ARTERY DISEASE [None]
  - SUDDEN DEATH [None]
